FAERS Safety Report 9844478 (Version 2)
Quarter: 2015Q1

REPORT INFORMATION
  Report Type: Spontaneous
  Country: FR (occurrence: None)
  Receive Date: 20140123
  Receipt Date: 20150203
  Transmission Date: 20150721
  Serious: Yes (Death)
  Sender: FDA-Public Use
  Company Number: KAD201401-000056

PATIENT

DRUGS (2)
  1. RIBAVIRIN. [Suspect]
     Active Substance: RIBAVIRIN
     Indication: HEPATITIS C
  2. PEGYLATED INTERFERON NOS [Suspect]
     Active Substance: PEGINTERFERON ALFA-2A OR PEGINTERFERON ALFA-2B OR PEGINTERFERON BETA-1A OR PEGINTERFERON LAMBDA-1A
     Indication: HEPATITIS C

REACTIONS (3)
  - Treatment failure [None]
  - Hepatic failure [None]
  - Infection [None]
